FAERS Safety Report 14620041 (Version 2)
Quarter: 2018Q2

REPORT INFORMATION
  Report Type: Spontaneous
  Country: DE (occurrence: DE)
  Receive Date: 20180309
  Receipt Date: 20180504
  Transmission Date: 20180711
  Serious: Yes (Hospitalization, Other)
  Sender: FDA-Public Use
  Company Number: DE-EMD SERONO-9013207

PATIENT
  Age: 90 Year
  Sex: Female

DRUGS (1)
  1. BAVENCIO [Suspect]
     Active Substance: AVELUMAB
     Indication: NEUROENDOCRINE CARCINOMA OF THE SKIN
     Route: 042

REACTIONS (6)
  - Dizziness [Unknown]
  - Device related infection [Unknown]
  - Pyrexia [Unknown]
  - Muscular weakness [Unknown]
  - Diplegia [Unknown]
  - Asthenia [Unknown]

NARRATIVE: CASE EVENT DATE: 20180225
